FAERS Safety Report 10649081 (Version 5)
Quarter: 2015Q4

REPORT INFORMATION
  Report Type: Report from Study
  Country: US (occurrence: US)
  Receive Date: 20141212
  Receipt Date: 20151214
  Transmission Date: 20160304
  Serious: Yes (Hospitalization)
  Sender: FDA-Public Use
  Company Number: US-PFIZER INC-2014331345

PATIENT
  Age: 63 Year
  Sex: Male
  Weight: 134 kg

DRUGS (22)
  1. CALCIUM [Concomitant]
     Active Substance: CALCIUM
     Indication: SUPPLEMENTATION THERAPY
     Dosage: UNK
     Route: 048
  2. COMPAZINE [Concomitant]
     Active Substance: PROCHLORPERAZINE MALEATE
     Indication: NAUSEA
     Dosage: UNK
     Route: 048
  3. FOLIC ACID. [Concomitant]
     Active Substance: FOLIC ACID
     Indication: SUPPLEMENTATION THERAPY
     Dosage: UNK
     Route: 048
  4. HYDROCODONE BITARTRATE W/PARACETAMOL [Concomitant]
     Active Substance: ACETAMINOPHEN\HYDROCODONE BITARTRATE
     Indication: PAIN
     Dosage: UNK
     Route: 048
  5. PRAZOSIN [Concomitant]
     Active Substance: PRAZOSIN
     Indication: HYPERTENSION
     Dosage: UNK
     Route: 048
  6. IMODIUM [Concomitant]
     Active Substance: LOPERAMIDE HYDROCHLORIDE
     Indication: DIARRHOEA
     Dosage: UNK
     Route: 048
  7. DILAUDID [Concomitant]
     Active Substance: HYDROMORPHONE HYDROCHLORIDE
     Indication: PAIN
     Dosage: UNK
     Route: 048
  8. NASACORT NASAL SPRAY [Concomitant]
     Indication: HYPERSENSITIVITY
     Dosage: UNK
     Route: 045
     Dates: start: 2013
  9. XARELTO [Concomitant]
     Active Substance: RIVAROXABAN
     Indication: THROMBOSIS PROPHYLAXIS
     Dosage: UNK
     Route: 048
  10. VITAMIN B COMPLEX /00003501/ [Concomitant]
     Indication: SUPPLEMENTATION THERAPY
     Dosage: UNK
     Route: 048
  11. PRILOSEC [Concomitant]
     Active Substance: OMEPRAZOLE MAGNESIUM
     Indication: GASTROOESOPHAGEAL REFLUX DISEASE
     Dosage: UNK
     Route: 048
  12. BENADRYL [Concomitant]
     Active Substance: DIPHENHYDRAMINE HYDROCHLORIDE
     Indication: HYPERSENSITIVITY
     Dosage: UNK
     Route: 048
     Dates: start: 2013
  13. MAGNESIUM [Concomitant]
     Active Substance: MAGNESIUM
     Indication: SUPPLEMENTATION THERAPY
     Dosage: UNK
     Route: 048
  14. ZOCOR [Concomitant]
     Active Substance: SIMVASTATIN
     Indication: HYPERLIPIDAEMIA
     Dosage: UNK
     Route: 048
  15. ZOLOFT [Concomitant]
     Active Substance: SERTRALINE HYDROCHLORIDE
     Indication: DEPRESSION
     Dosage: UNK
     Route: 048
  16. TYLENOL [Concomitant]
     Active Substance: ACETAMINOPHEN
     Indication: PAIN
     Dosage: UNK
     Route: 048
  17. ATIVAN [Concomitant]
     Active Substance: LORAZEPAM
     Indication: ANXIETY
     Dosage: UNK
     Route: 048
  18. CRIZOTINIB [Suspect]
     Active Substance: CRIZOTINIB
     Indication: LUNG NEOPLASM MALIGNANT
     Dosage: 250 MG, 2X/DAY (BID)
     Route: 048
     Dates: start: 20141106
  19. CLOTRIMAZOLE CREAM [Concomitant]
     Active Substance: CLOTRIMAZOLE
     Indication: RASH
     Dosage: UNK
     Route: 061
     Dates: start: 2013
  20. ZOFRAN [Concomitant]
     Active Substance: ONDANSETRON HYDROCHLORIDE
     Indication: NAUSEA
     Dosage: UNK
     Route: 048
  21. LORATADINE. [Concomitant]
     Active Substance: LORATADINE
     Indication: HYPERSENSITIVITY
     Dosage: UNK
     Route: 048
     Dates: start: 2013
  22. VITAMIN C [Concomitant]
     Active Substance: ASCORBIC ACID
     Indication: SUPPLEMENTATION THERAPY
     Dosage: UNK
     Route: 048

REACTIONS (1)
  - Cellulitis [Recovered/Resolved]

NARRATIVE: CASE EVENT DATE: 20141201
